APPROVED DRUG PRODUCT: HEPARIN SODIUM 25,000 UNITS IN SODIUM CHLORIDE 0.9% IN PLASTIC CONTAINER
Active Ingredient: HEPARIN SODIUM
Strength: 5,000 UNITS/100ML
Dosage Form/Route: INJECTABLE;INJECTION
Application: N018916 | Product #009
Applicant: HOSPIRA INC
Approved: Jan 31, 1984 | RLD: No | RS: No | Type: DISCN